FAERS Safety Report 5200314-1 (Version None)
Quarter: 2007Q1

REPORT INFORMATION
  Report Type: 
  Country: None (occurrence: None)
  Receive Date: 20070105
  Receipt Date: 20061225
  Transmission Date: 20070707
  Serious: Yes (Hospitalization, Other)
  Sender: FDA-Public Use
  Company Number: JP-PFIZER INC-2006147177

PATIENT
  Sex: Male

DRUGS (2)
  1. HALCION [Suspect]
     Dosage: TEXT:UNKNOWN
     Route: 048
  2. ALCOHOL [Interacting]
     Dosage: TEXT:UNKNOWN
     Route: 048

REACTIONS (6)
  - ALCOHOL INTERACTION [None]
  - AMNESIA [None]
  - DRUG INTERACTION [None]
  - FALL [None]
  - FOOT FRACTURE [None]
  - PAIN IN EXTREMITY [None]
